FAERS Safety Report 16469553 (Version 1)
Quarter: 2019Q3

REPORT INFORMATION
  Report Type: Spontaneous
  Country: US (occurrence: US)
  Receive Date: 20190622
  Receipt Date: 20190622
  Transmission Date: 20191004
  Serious: No
  Sender: FDA-Public Use
  Company Number: None

PATIENT
  Age: 42 Year
  Sex: Female
  Weight: 78.75 kg

DRUGS (9)
  1. NUCYNTA [Concomitant]
     Active Substance: TAPENTADOL HYDROCHLORIDE
  2. AJOVY [Concomitant]
     Active Substance: FREMANEZUMAB-VFRM
  3. AIMOVIG [Suspect]
     Active Substance: ERENUMAB-AOOE
     Indication: MIGRAINE PROPHYLAXIS
     Dosage: ?          QUANTITY:1 INJECTION(S);OTHER FREQUENCY:ONCE A MONTH;OTHER ROUTE:INJECTED INTO THIGH?
     Dates: start: 20181201, end: 20190601
  4. DILTIAZEM. [Concomitant]
     Active Substance: DILTIAZEM
  5. ALBUTEROL. [Concomitant]
     Active Substance: ALBUTEROL
  6. VITAMIN B12 [Concomitant]
     Active Substance: CYANOCOBALAMIN
  7. IRON [Concomitant]
     Active Substance: IRON
  8. FISH OIL [Concomitant]
     Active Substance: FISH OIL
  9. CELEBREX [Concomitant]
     Active Substance: CELECOXIB

REACTIONS (1)
  - Alopecia [None]

NARRATIVE: CASE EVENT DATE: 20190601
